FAERS Safety Report 11043225 (Version 1)
Quarter: 2015Q2

REPORT INFORMATION
  Report Type: Spontaneous
  Country: GB (occurrence: GB)
  Receive Date: 20150417
  Receipt Date: 20150417
  Transmission Date: 20150821
  Serious: Yes (Other)
  Sender: FDA-Public Use
  Company Number: GB-TEVA-554734ACC

PATIENT
  Age: 64 Year
  Sex: Female
  Weight: 93 kg

DRUGS (9)
  1. FLUTICASONE FUROATE [Concomitant]
     Active Substance: FLUTICASONE FUROATE
  2. FOSTAIR [Concomitant]
     Active Substance: BECLOMETHASONE\FORMOTEROL
  3. GABAPENTIN. [Suspect]
     Active Substance: GABAPENTIN
     Indication: FACIAL PAIN
     Route: 048
     Dates: start: 20150309
  4. VENTOLIN [Concomitant]
     Active Substance: ALBUTEROL SULFATE
  5. GABAPENTIN. [Suspect]
     Active Substance: GABAPENTIN
     Indication: FACIAL PAIN
     Dosage: ONCE TO TWICE DAILY THEN THREE TIMES DAILY
     Route: 048
     Dates: start: 20150304
  6. SIMVASTATIN. [Concomitant]
     Active Substance: SIMVASTATIN
  7. BENDROFLUMETHIAZID [Concomitant]
  8. MONTELUKAST [Concomitant]
     Active Substance: MONTELUKAST SODIUM
  9. GABAPENTIN. [Suspect]
     Active Substance: GABAPENTIN
     Indication: FACIAL PAIN
     Dosage: 300MG TWICE A DAY AND 900MG NOCTE
     Route: 048
     Dates: end: 20150331

REACTIONS (2)
  - Leukopenia [Recovered/Resolved]
  - Neutropenia [Recovered/Resolved]

NARRATIVE: CASE EVENT DATE: 20150304
